FAERS Safety Report 23732803 (Version 1)
Quarter: 2024Q2

REPORT INFORMATION
  Report Type: Report from Study
  Country: US (occurrence: None)
  Receive Date: 20240411
  Receipt Date: 20240411
  Transmission Date: 20240716
  Serious: Yes (Death)
  Sender: FDA-Public Use
  Company Number: 2020SE11636

PATIENT
  Age: 32994 Day
  Sex: Female

DRUGS (2)
  1. TAGRISSO [Suspect]
     Active Substance: OSIMERTINIB
     Indication: Lung neoplasm malignant
     Dosage: 80 MG FOR THREE DAYS, A TUESDAY, WEDNESDAY AND THURSDAY.
     Route: 048
     Dates: end: 20191227
  2. UNSPECIFIED INGREDIENT [Concomitant]
     Active Substance: UNSPECIFIED INGREDIENT
     Indication: Coagulopathy

REACTIONS (3)
  - Thrombosis [Fatal]
  - Metastases to adrenals [Fatal]
  - Lung disorder [Fatal]
